FAERS Safety Report 6731069-7 (Version None)
Quarter: 2010Q2

REPORT INFORMATION
  Report Type: 
  Country: None (occurrence: None)
  Receive Date: 20100518
  Receipt Date: 20100514
  Transmission Date: 20101027
  Serious: Yes (Congenital Anomaly)
  Sender: FDA-Public Use
  Company Number: GB-BRISTOL-MYERS SQUIBB COMPANY-15086960

PATIENT

DRUGS (5)
  1. EFAVIRENZ [Suspect]
     Route: 064
     Dates: start: 20021001
  2. EPZICOM [Suspect]
     Route: 064
     Dates: start: 20070101
  3. COMBIVIR [Suspect]
     Route: 064
     Dates: start: 20070801
  4. KALETRA [Suspect]
     Route: 064
     Dates: start: 20070920
  5. VIRAMUNE [Suspect]
     Route: 064
     Dates: start: 20070816

REACTIONS (6)
  - CARDIAC MALPOSITION [None]
  - CONGENITAL HEPATOBILIARY ANOMALY [None]
  - DEFORMITY THORAX [None]
  - DIAPHRAGMATIC APLASIA [None]
  - EXOMPHALOS [None]
  - MICROCEPHALY [None]
